FAERS Safety Report 7417563-4 (Version None)
Quarter: 2011Q2

REPORT INFORMATION
  Report Type: 
  Country: None (occurrence: None)
  Receive Date: 20110415
  Receipt Date: 20110412
  Transmission Date: 20111010
  Serious: Yes (Death, Other)
  Sender: FDA-Public Use
  Company Number: GB-B.I. PHARMACEUTICALS,INC./RIDGEFIELD-2011-UK-00200UK

PATIENT
  Sex: Female
  Weight: 77 kg

DRUGS (21)
  1. PRADAXA [Suspect]
     Indication: THROMBOSIS PROPHYLAXIS
     Dosage: 220 MG
     Route: 048
     Dates: start: 20110205
  2. METOCLOPRAMIDE [Concomitant]
     Indication: ANAESTHETIC PREMEDICATION
     Dosage: 10MG STAT
     Route: 048
     Dates: start: 20110202, end: 20110202
  3. PREGABALIN [Concomitant]
     Indication: NEURALGIA
     Dosage: 25 MG TDS
     Route: 048
  4. DIAZEPAM [Concomitant]
     Indication: MUSCLE SPASMS
     Dosage: 4MG PRN TDS
     Route: 048
     Dates: start: 20110203, end: 20110205
  5. VENLAFAXINE HCL [Concomitant]
     Indication: NEURALGIA
     Dosage: 150MG MANE
     Route: 048
  6. VENLAFAXINE HCL [Concomitant]
     Dosage: 75MG NOCTE
     Route: 048
  7. PARACETAMOL [Concomitant]
     Indication: ANALGESIC THERAPY
     Dosage: 1G QD
     Route: 048
     Dates: start: 20110202
  8. MORPHINE [Concomitant]
     Indication: ANALGESIC THERAPY
     Dosage: 1MG-ML, ONLY 1ML USED IN 24HRS
     Route: 042
     Dates: start: 20110202, end: 20110202
  9. HARTMANNS [Concomitant]
     Indication: FLUID REPLACEMENT
     Dosage: 1L PRN
     Route: 042
     Dates: start: 20110202, end: 20110202
  10. CELECOXIB [Concomitant]
     Indication: ANALGESIC THERAPY
     Dosage: 100MG BD
     Route: 048
  11. ENOXAPARIN [Concomitant]
     Indication: THROMBOSIS PROPHYLAXIS
     Dosage: 40MG OD
     Route: 058
     Dates: start: 20110202, end: 20110204
  12. RANITIDINE [Concomitant]
     Indication: ANAESTHETIC PREMEDICATION
     Dosage: 150MG STAT
     Route: 048
     Dates: start: 20110202, end: 20110202
  13. OXYCODONE MR [Concomitant]
     Indication: ANALGESIC THERAPY
     Dosage: 20MG BD
     Route: 048
     Dates: start: 20110203, end: 20110204
  14. LANSOPRAZOLE [Concomitant]
     Indication: GASTROOESOPHAGEAL REFLUX PROPHYLAXIS
     Dosage: 30MG OD
     Route: 048
     Dates: start: 20110204
  15. CYCLIZINE [Concomitant]
     Indication: PROPHYLAXIS OF NAUSEA AND VOMITING
     Dosage: 50MG
     Route: 042
     Dates: start: 20110204, end: 20110204
  16. MIRTAZAPINE [Concomitant]
     Indication: NEURALGIA
     Dosage: 15MG NOCTE
     Route: 048
  17. ONDANSETRON [Concomitant]
     Indication: PROPHYLAXIS OF NAUSEA AND VOMITING
     Dosage: 4MG QD PRN
     Route: 042
     Dates: start: 20110202, end: 20110202
  18. OMEPRAZOLE [Concomitant]
     Dosage: 20MG OD
     Route: 048
  19. MIGRALEVE [Concomitant]
     Dosage: PRN
     Route: 048
  20. CODEINE [Concomitant]
     Indication: ANALGESIC THERAPY
     Dosage: 30-60MG QDS PRN
     Route: 048
     Dates: start: 20110204
  21. TEICOPLANIN [Concomitant]
     Indication: ANTIBIOTIC PROPHYLAXIS
     Dosage: 400MG STAT
     Route: 042
     Dates: start: 20110202, end: 20110202

REACTIONS (3)
  - PULMONARY EMBOLISM [None]
  - MYOCARDIAL INFARCTION [None]
  - WOUND INFECTION STAPHYLOCOCCAL [None]
